FAERS Safety Report 15357927 (Version 1)
Quarter: 2018Q3

REPORT INFORMATION
  Report Type: Spontaneous
  Country: DE (occurrence: DE)
  Receive Date: 20180906
  Receipt Date: 20180906
  Transmission Date: 20181010
  Serious: Yes (Hospitalization)
  Sender: FDA-Public Use
  Company Number: PHHY2017DE204747

PATIENT
  Age: 52 Year
  Sex: Male

DRUGS (2)
  1. METHOTREXAT [Suspect]
     Active Substance: METHOTREXATE
     Indication: RHEUMATOID ARTHRITIS
     Dosage: 2.5 MG, UNK
     Route: 065
  2. RITUXIMAB. [Suspect]
     Active Substance: RITUXIMAB
     Indication: RHEUMATOID ARTHRITIS
     Dosage: 1000 MG, UNK
     Route: 042

REACTIONS (4)
  - Abscess [Recovered/Resolved]
  - Epididymitis [Recovered/Resolved]
  - Post procedural fever [Recovered/Resolved]
  - Orchitis [Recovered/Resolved]

NARRATIVE: CASE EVENT DATE: 20170619
